FAERS Safety Report 22349811 (Version 1)
Quarter: 2023Q2

REPORT INFORMATION
  Report Type: Spontaneous
  Country: US (occurrence: US)
  Receive Date: 20230522
  Receipt Date: 20230522
  Transmission Date: 20230722
  Serious: No
  Sender: FDA-Public Use
  Company Number: US-BAYER-2023A062232

PATIENT
  Age: 14 Year
  Sex: Male
  Weight: 70.3 kg

DRUGS (1)
  1. CLARITIN [Suspect]
     Active Substance: LORATADINE
     Dosage: 4 DF
     Route: 048

REACTIONS (1)
  - Extra dose administered [Unknown]
